FAERS Safety Report 17394986 (Version 1)
Quarter: 2020Q1

REPORT INFORMATION
  Report Type: Spontaneous
  Country: CA (occurrence: CA)
  Receive Date: 20200210
  Receipt Date: 20200210
  Transmission Date: 20200409
  Serious: Yes (Other)
  Sender: FDA-Public Use
  Company Number: CA-AUROBINDO-AUR-APL-2020-005424

PATIENT
  Sex: Female
  Weight: 79.38 kg

DRUGS (1)
  1. TOPIRAMATE. [Suspect]
     Active Substance: TOPIRAMATE
     Indication: BIPOLAR DISORDER
     Dosage: 300 MILLIGRAM, ONCE A DAY
     Route: 065

REACTIONS (4)
  - Product substitution issue [Unknown]
  - Lung disorder [Unknown]
  - Weight increased [Unknown]
  - Mood swings [Unknown]
